FAERS Safety Report 10591793 (Version 3)
Quarter: 2014Q4

REPORT INFORMATION
  Report Type: Report from Study
  Country: GB (occurrence: GB)
  Receive Date: 20141118
  Receipt Date: 20141216
  Transmission Date: 20150529
  Serious: Yes (Other)
  Sender: FDA-Public Use
  Company Number: GB-AMGEN-GBRCT2014002743

PATIENT
  Age: 29 Year
  Sex: Female

DRUGS (3)
  1. VITAMIN D                          /00107901/ [Concomitant]
     Active Substance: ERGOCALCIFEROL
     Indication: PREGNANCY
     Dosage: UNK UNK, QD
     Route: 048
     Dates: start: 20131201
  2. DENOSUMAB [Suspect]
     Active Substance: DENOSUMAB
     Indication: BONE GIANT CELL TUMOUR
     Dosage: 120 MG, QMO
     Route: 050
     Dates: start: 20111017, end: 20140512
  3. FOLIC ACID. [Concomitant]
     Active Substance: FOLIC ACID
     Indication: PREGNANCY
     Dosage: 400 MG, QD
     Route: 048
     Dates: start: 20131201, end: 20140204

REACTIONS (4)
  - Polyhydramnios [Unknown]
  - Streptococcal infection [Unknown]
  - Caesarean section [Unknown]
  - Infection [Unknown]

NARRATIVE: CASE EVENT DATE: 20140821
